FAERS Safety Report 4286921-1 (Version None)
Quarter: 2004Q1

REPORT INFORMATION
  Report Type: 
  Country: None (occurrence: None)
  Receive Date: 20040204
  Receipt Date: 20040123
  Transmission Date: 20041129
  Serious: Yes (Hospitalization)
  Sender: FDA-Public Use
  Company Number: US-JNJFOC-20031005554

PATIENT
  Age: 70 Year
  Sex: Female
  Weight: 48.0813 kg

DRUGS (29)
  1. REMICADE [Suspect]
     Indication: RHEUMATOID ARTHRITIS
     Dosage: 400 MG, 1 IN 1 DAY, INTRAVENOUS; INTRAVENOUS (X 16); 400 MG, 1 IN 1 DAY, INTRAVENOUS
     Route: 042
     Dates: start: 20030821
  2. BEXTRA (BUCINDOLOL SODIUM) [Concomitant]
  3. METHOTREXATE SODIUM [Concomitant]
  4. FOSAMAX [Concomitant]
  5. PREDNISONE [Concomitant]
  6. COMBIVENT [Concomitant]
  7. ATIVAN [Concomitant]
  8. MODURETIC 5-50 [Concomitant]
  9. LEXAPRO (ALL OTHER THERAPEUTIC PRODUCTS) [Concomitant]
  10. EFFEXOR [Concomitant]
  11. PAXIL [Concomitant]
  12. REMICADE [Suspect]
     Dosage: INTRAVENOUS
     Route: 042
     Dates: start: 20030707
  13. REMICADE [Suspect]
     Dosage: INTRAVENOUS
     Route: 042
     Dates: start: 20030530
  14. REMICADE [Suspect]
     Dosage: INTRAVENOUS
     Route: 042
     Dates: start: 20030416
  15. REMICADE [Suspect]
     Dosage: INTRAVENOUS
     Route: 042
     Dates: start: 20030306
  16. REMICADE [Suspect]
     Dosage: INTRAVENOUS
     Route: 042
     Dates: start: 20021231
  17. REMICADE [Suspect]
     Dosage: INTRAVENOUS
     Route: 042
     Dates: start: 20021114
  18. REMICADE [Suspect]
     Dosage: INTRAVENOUS
     Route: 042
     Dates: start: 20020918
  19. REMICADE [Suspect]
     Dosage: INTRAVENOUS
     Route: 042
     Dates: start: 20020709
  20. REMICADE [Suspect]
     Dosage: INTRAVENOUS
     Route: 042
     Dates: start: 20020510
  21. REMICADE [Suspect]
     Dosage: INTRAVENOUS
     Route: 042
     Dates: start: 20020318
  22. REMICADE [Suspect]
     Dosage: INTRAVENOUS
     Route: 042
     Dates: start: 20020123
  23. REMICADE [Suspect]
     Dosage: INTRAVENOUS
     Route: 042
     Dates: start: 20011127
  24. REMICADE [Suspect]
     Dosage: INTRAVENOUS
     Route: 042
     Dates: start: 20010925
  25. REMICADE [Suspect]
     Dosage: INTRAVENOUS
     Route: 042
     Dates: start: 20010731
  26. REMICADE [Suspect]
     Dosage: INTRAVENOUS
     Route: 042
     Dates: start: 20010606
  27. REMICADE [Suspect]
     Dosage: INTRAVENOUS
     Route: 042
     Dates: start: 20010509
  28. REMICADE [Suspect]
     Dosage: 400 MG, 1 IN 1 DAY, INTRAVENOUS
     Route: 042
     Dates: start: 20010423
  29. REMICADE [Suspect]

REACTIONS (5)
  - EMPHYSEMA [None]
  - NODULE [None]
  - PNEUMONIA [None]
  - PRODUCTIVE COUGH [None]
  - SMALL CELL LUNG CANCER STAGE UNSPECIFIED [None]
